FAERS Safety Report 17142686 (Version 1)
Quarter: 2019Q4

REPORT INFORMATION
  Report Type: Spontaneous
  Country: CA (occurrence: CA)
  Receive Date: 20191211
  Receipt Date: 20191211
  Transmission Date: 20200122
  Serious: Yes (Other)
  Sender: FDA-Public Use
  Company Number: CA-PFIZER INC-2019534534

PATIENT
  Sex: Female

DRUGS (12)
  1. DESIPRAMINE [Suspect]
     Active Substance: DESIPRAMINE
     Dosage: 50 MG, 1X/DAY
     Route: 048
  2. DESIPRAMINE [Suspect]
     Active Substance: DESIPRAMINE
     Dosage: 70 MG, 1X/DAY
     Route: 048
  3. CELECOXIB. [Suspect]
     Active Substance: CELECOXIB
     Dosage: 2 DF, UNK
     Route: 065
  4. NORTRIPTYLINE HYDROCHLORIDE. [Suspect]
     Active Substance: NORTRIPTYLINE HYDROCHLORIDE
     Indication: PANIC ATTACK
     Dosage: 35 MG, 1X/DAY
     Route: 048
  5. VORTIOXETINE HYDROBROMIDE [Concomitant]
     Active Substance: VORTIOXETINE HYDROBROMIDE
     Indication: PANIC ATTACK
     Dosage: 20 MG, 1X/DAY
     Route: 048
  6. ZYPREXA [Concomitant]
     Active Substance: OLANZAPINE
     Indication: ANXIETY
     Dosage: 1.25 MG, 1X/DAY
     Route: 048
  7. DESIPRAMINE [Suspect]
     Active Substance: DESIPRAMINE
     Dosage: 30 MG, 1X/DAY
     Route: 048
  8. NORTRIPTYLINE HYDROCHLORIDE. [Suspect]
     Active Substance: NORTRIPTYLINE HYDROCHLORIDE
     Indication: PANIC ATTACK
     Dosage: 10 MG, 1X/DAY
     Route: 048
  9. APO-NAPROXEN [Suspect]
     Active Substance: NAPROXEN
     Indication: ADVERSE REACTION
     Dosage: 2 DF, 1X/DAY
     Route: 065
  10. VORTIOXETINE HYDROBROMIDE [Concomitant]
     Active Substance: VORTIOXETINE HYDROBROMIDE
     Indication: ANXIETY
  11. AMITRIPTYLINE [Suspect]
     Active Substance: AMITRIPTYLINE
     Indication: PANIC ATTACK
     Dosage: 60 MG, 1X/DAY
     Route: 065
  12. NORTRIPTYLINE HYDROCHLORIDE. [Suspect]
     Active Substance: NORTRIPTYLINE HYDROCHLORIDE
     Dosage: 20 MG, 1X/DAY
     Route: 048

REACTIONS (8)
  - Pain in extremity [Not Recovered/Not Resolved]
  - Hypoaesthesia [Not Recovered/Not Resolved]
  - Muscle spasms [Not Recovered/Not Resolved]
  - Weight increased [Not Recovered/Not Resolved]
  - Dyskinesia [Not Recovered/Not Resolved]
  - Drug ineffective [Not Recovered/Not Resolved]
  - Loss of consciousness [Not Recovered/Not Resolved]
  - Condition aggravated [Not Recovered/Not Resolved]
